FAERS Safety Report 8003941-1 (Version None)
Quarter: 2011Q4

REPORT INFORMATION
  Report Type: 
  Country: None (occurrence: None)
  Receive Date: 20111222
  Receipt Date: 20111213
  Transmission Date: 20120403
  Serious: Yes (Life-Threatening, Hospitalization, Other)
  Sender: FDA-Public Use
  Company Number: US-RB-035485-11

PATIENT
  Sex: Male

DRUGS (7)
  1. ZOFRAN [Concomitant]
     Indication: NAUSEA
     Route: 064
  2. ZOFRAN [Concomitant]
     Indication: VOMITING
     Route: 064
  3. PHENERGAN [Suspect]
     Indication: NAUSEA
     Dosage: 20 MG AS NEEDED
     Route: 065
  4. SUBOXONE [Suspect]
     Indication: DRUG DEPENDENCE
     Route: 064
     Dates: end: 20110501
  5. ADDERALL 5 [Concomitant]
     Indication: ATTENTION DEFICIT/HYPERACTIVITY DISORDER
     Route: 064
     Dates: start: 20101207, end: 20110501
  6. VISTARIL [Concomitant]
     Indication: ANXIETY
     Route: 064
     Dates: start: 20101207, end: 20110501
  7. CYMBALTA [Concomitant]
     Indication: DEPRESSION
     Route: 064
     Dates: start: 20101207, end: 20110501

REACTIONS (3)
  - DRUG WITHDRAWAL SYNDROME NEONATAL [None]
  - FOETAL EXPOSURE DURING PREGNANCY [None]
  - PNEUMOTHORAX [None]
